FAERS Safety Report 9129558 (Version 2)
Quarter: 2013Q2

REPORT INFORMATION
  Report Type: Report from Study
  Country: US (occurrence: US)
  Receive Date: 20130228
  Receipt Date: 20130419
  Transmission Date: 20140414
  Serious: Yes (Other)
  Sender: FDA-Public Use
  Company Number: US-ROCHE-1195786

PATIENT
  Sex: Female

DRUGS (3)
  1. XELODA [Suspect]
     Indication: BREAST CANCER
     Route: 065
  2. CYTOXAN [Concomitant]
  3. METHOTREXATE [Concomitant]

REACTIONS (2)
  - Drug ineffective [Unknown]
  - Disease progression [Unknown]
